FAERS Safety Report 11228857 (Version 1)
Quarter: 2015Q2

REPORT INFORMATION
  Report Type: Spontaneous
  Country: JP (occurrence: JP)
  Receive Date: 20150630
  Receipt Date: 20150630
  Transmission Date: 20150821
  Serious: Yes (Other)
  Sender: FDA-Public Use
  Company Number: JP-MYLANLABS-2015M1021480

PATIENT

DRUGS (2)
  1. OLANZAPINE. [Suspect]
     Active Substance: OLANZAPINE
     Indication: SCHIZOPHRENIA
     Dosage: 20MG/DAY AND THEN INCREASED TO 30 MG/DAY
     Route: 065
  2. OLANZAPINE. [Suspect]
     Active Substance: OLANZAPINE
     Dosage: 30MG/DAY
     Route: 065

REACTIONS (4)
  - Hyperinsulinaemia [Recovering/Resolving]
  - Endocrine disorder [Recovering/Resolving]
  - Dumping syndrome [Recovering/Resolving]
  - Hypoglycaemia [Recovering/Resolving]
